FAERS Safety Report 4900351-8 (Version None)
Quarter: 2006Q1

REPORT INFORMATION
  Report Type: 
  Country: None (occurrence: None)
  Receive Date: 20060203
  Receipt Date: 20060131
  Transmission Date: 20060701
  Serious: Yes (Other)
  Sender: FDA-Public Use
  Company Number: FR-GLAXOSMITHKLINE-B0408812A

PATIENT
  Age: 35 Year
  Sex: Male

DRUGS (1)
  1. ZYBAN [Suspect]
     Indication: SMOKING CESSATION THERAPY
     Route: 048
     Dates: start: 20060101, end: 20060126

REACTIONS (3)
  - ATROPHY OF TONGUE PAPILLAE [None]
  - ORAL MUCOSAL ERUPTION [None]
  - STOMATITIS [None]
